FAERS Safety Report 5193664-9 (Version None)
Quarter: 2006Q4

REPORT INFORMATION
  Report Type: 
  Country: None (occurrence: None)
  Receive Date: 20061218
  Receipt Date: 20060922
  Transmission Date: 20070319
  Serious: Yes (Hospitalization, Other)
  Sender: FDA-Public Use
  Company Number: 2006BH013573

PATIENT
  Age: 57 Year
  Sex: Male

DRUGS (1)
  1. TISSUCOL/TISSEEL DUO STIM4 (FIBRIN SEALANT) [Suspect]
     Indication: INGUINAL HERNIA
     Dates: start: 20060901, end: 20060901

REACTIONS (3)
  - ABSCESS [None]
  - PHARMACEUTICAL PRODUCT COMPLAINT [None]
  - STAPHYLOCOCCAL INFECTION [None]
